FAERS Safety Report 5319438-3 (Version None)
Quarter: 2007Q2

REPORT INFORMATION
  Report Type: 
  Country: None (occurrence: None)
  Receive Date: 20070508
  Receipt Date: 20070424
  Transmission Date: 20071010
  Serious: Yes (Other)
  Sender: FDA-Public Use
  Company Number: US-ELI_LILLY_AND_COMPANY-US200704005213

PATIENT
  Sex: Female

DRUGS (1)
  1. FORTEO [Suspect]
     Dates: start: 20050707

REACTIONS (2)
  - MULTIPLE FRACTURES [None]
  - PELVIC FRACTURE [None]
